FAERS Safety Report 26030526 (Version 5)
Quarter: 2025Q4

REPORT INFORMATION
  Report Type: Spontaneous
  Country: EU (occurrence: EU)
  Receive Date: 20251112
  Receipt Date: 20251203
  Transmission Date: 20260118
  Serious: Yes (Hospitalization, Other)
  Sender: CELLTRION
  Company Number: EU-CELLTRION INC.-2025DE040628

PATIENT

DRUGS (6)
  1. ADALIMUMAB [Suspect]
     Active Substance: ADALIMUMAB
     Indication: Hidradenitis
     Dosage: UNK
     Route: 058
  2. ADALIMUMAB [Suspect]
     Active Substance: ADALIMUMAB
     Dosage: UNK
     Route: 065
  3. RIFAMPIN [Concomitant]
     Active Substance: RIFAMPIN
     Indication: Antibiotic prophylaxis
     Dosage: 300 MG, BID (2 X 300 MG)
     Route: 065
  4. RIFAMPIN [Concomitant]
     Active Substance: RIFAMPIN
     Indication: Antibiotic prophylaxis
     Dosage: 300 MG, BID  (2 X 300 MG )
  5. RIFAMPIN [Concomitant]
     Active Substance: RIFAMPIN
     Indication: Prophylaxis
  6. RIFAMPIN [Concomitant]
     Active Substance: RIFAMPIN
     Indication: Tuberculosis

REACTIONS (8)
  - Hidradenitis [Recovered/Resolved]
  - Uveitis [Recovered/Resolved]
  - Paradoxical drug reaction [Recovered/Resolved]
  - Vogt-Koyanagi-Harada disease [Recovered/Resolved]
  - Stress [Recovered/Resolved]
  - Nasopharyngitis [Recovered/Resolved]
  - Therapy partial responder [Unknown]
  - Therapeutic product effect incomplete [Unknown]
